FAERS Safety Report 6282971-4 (Version None)
Quarter: 2009Q3

REPORT INFORMATION
  Report Type: 
  Country: None (occurrence: None)
  Receive Date: 20090724
  Receipt Date: 20070524
  Transmission Date: 20100115
  Serious: Yes (Other)
  Sender: FDA-Public Use
  Company Number: PHHY2007GR01301

PATIENT

DRUGS (1)
  1. ZOLEDRONIC ACID [Suspect]
     Indication: OSTEOLYSIS

REACTIONS (2)
  - OSTEONECROSIS [None]
  - SURGERY [None]
